FAERS Safety Report 6449624-0 (Version None)
Quarter: 2009Q4

REPORT INFORMATION
  Report Type: 
  Country: None (occurrence: None)
  Receive Date: 20091120
  Receipt Date: 20091105
  Transmission Date: 20100525
  Serious: Yes (Congenital Anomaly)
  Sender: FDA-Public Use
  Company Number: GB-PFIZER INC-2009295873

PATIENT
  Sex: Female

DRUGS (3)
  1. PHENYTOIN AND PHENYTOIN SODIUM [Suspect]
     Indication: PARTIAL SEIZURES
     Dosage: 375 MG, 1X/DAY
  2. VIGABATRIN [Suspect]
     Indication: PARTIAL SEIZURES
     Dosage: 2000 MG, 1X/DAY
  3. TOPIRAMATE [Suspect]
     Indication: PARTIAL SEIZURES
     Dosage: 100 MG, 1X/DAY

REACTIONS (5)
  - CONGENITAL VESICOURETERIC REFLUX [None]
  - DRUG EXPOSURE DURING PREGNANCY [None]
  - MATERNAL DRUGS AFFECTING FOETUS [None]
  - POSTMATURE BABY [None]
  - VESICOURETERIC REFLUX [None]
